FAERS Safety Report 9116880 (Version 1)
Quarter: 2013Q1

REPORT INFORMATION
  Report Type: Spontaneous
  Country: NL (occurrence: NL)
  Receive Date: 20130225
  Receipt Date: 20130225
  Transmission Date: 20140127
  Serious: Yes (Other)
  Sender: FDA-Public Use
  Company Number: PHHY2013NL017369

PATIENT
  Age: 62 Year
  Sex: Male

DRUGS (5)
  1. ZOMETA [Suspect]
     Indication: PROSTATE CANCER METASTATIC
     Dosage: 4 MG/100 ML, 1 PER 28 DAYS
     Route: 042
  2. ZOMETA [Suspect]
     Dosage: 4 MG/100ML,1 PER 28 DAYS
     Route: 042
     Dates: start: 20130123
  3. ZOMETA [Suspect]
     Dosage: 4 MG,/100ML,1 PER 28 DAYS
     Route: 042
     Dates: start: 20130220
  4. ESTRACYT//ESTRAMUSTINE PHOSPHATE [Concomitant]
     Dosage: UNK UKN, UNK
  5. ELIGARD [Concomitant]
     Dosage: UNK UKN, UNK

REACTIONS (2)
  - Pneumonia [Recovered/Resolved]
  - Influenza like illness [Recovered/Resolved]
